FAERS Safety Report 8457175-7 (Version None)
Quarter: 2012Q2

REPORT INFORMATION
  Report Type: 
  Country: None (occurrence: None)
  Receive Date: 20120621
  Receipt Date: 20120612
  Transmission Date: 20120825
  Serious: No
  Sender: FDA-Public Use
  Company Number: US-BAYER-2012-058830

PATIENT
  Sex: Female

DRUGS (1)
  1. MIRENA [Suspect]
     Dosage: 20 ?G/D, CONT
     Route: 015
     Dates: start: 20090101

REACTIONS (5)
  - DEVICE EXPULSION [None]
  - MENSTRUAL DISORDER [None]
  - BURNING SENSATION [None]
  - COUGH [None]
  - WEIGHT INCREASED [None]
